FAERS Safety Report 19882309 (Version 2)
Quarter: 2021Q4

REPORT INFORMATION
  Report Type: Report from Study
  Country: NL (occurrence: NL)
  Receive Date: 20210924
  Receipt Date: 20211005
  Transmission Date: 20220303
  Serious: Yes (Hospitalization)
  Sender: FDA-Public Use
  Company Number: NL-VER-202100139

PATIENT
  Age: 79 Year
  Sex: Male

DRUGS (1)
  1. TRIPTORELIN PAMOATE [Suspect]
     Active Substance: TRIPTORELIN PAMOATE
     Indication: Product used for unknown indication
     Route: 030
     Dates: start: 20210318

REACTIONS (1)
  - Bacterial infection [Recovering/Resolving]

NARRATIVE: CASE EVENT DATE: 20210812
